FAERS Safety Report 9934600 (Version 1)
Quarter: 2014Q1

REPORT INFORMATION
  Report Type: Spontaneous
  Country: US (occurrence: US)
  Receive Date: 20140228
  Receipt Date: 20140228
  Transmission Date: 20141002
  Serious: No
  Sender: FDA-Public Use
  Company Number: US-ASTRAZENECA-2013SE73977

PATIENT
  Sex: Female

DRUGS (4)
  1. TOPROL XL [Suspect]
     Indication: BLOOD PRESSURE ABNORMAL
     Route: 048
     Dates: start: 2013
  2. TOPROL XL [Suspect]
     Indication: ILL-DEFINED DISORDER
     Route: 048
     Dates: start: 2013
  3. TOPROL XL [Suspect]
     Indication: BLOOD PRESSURE ABNORMAL
     Route: 065
  4. TOPROL XL [Suspect]
     Indication: ILL-DEFINED DISORDER
     Route: 065

REACTIONS (2)
  - Blood pressure increased [Not Recovered/Not Resolved]
  - Drug dispensing error [Unknown]
